FAERS Safety Report 20797611 (Version 1)
Quarter: 2022Q2

REPORT INFORMATION
  Report Type: Spontaneous
  Country: JP (occurrence: JP)
  Receive Date: 20220506
  Receipt Date: 20220506
  Transmission Date: 20220720
  Serious: Yes (Other)
  Sender: FDA-Public Use
  Company Number: JP-NOVARTISPH-NVSJ2022JP089572

PATIENT
  Age: 78 Year
  Sex: Male

DRUGS (1)
  1. VALACYCLOVIR HYDROCHLORIDE [Suspect]
     Active Substance: VALACYCLOVIR HYDROCHLORIDE
     Indication: Eczema herpeticum
     Route: 048

REACTIONS (3)
  - Facial paralysis [Recovering/Resolving]
  - Sialometaplasia [Recovering/Resolving]
  - Drug ineffective [Unknown]
